FAERS Safety Report 10488094 (Version 1)
Quarter: 2014Q4

REPORT INFORMATION
  Report Type: Spontaneous
  Country: AU (occurrence: AU)
  Receive Date: 20141002
  Receipt Date: 20141002
  Transmission Date: 20150528
  Serious: Yes (Other)
  Sender: FDA-Public Use
  Company Number: PHHY2014AU125980

PATIENT
  Age: 23 Year
  Sex: Male

DRUGS (6)
  1. PREDNISOLONE. [Concomitant]
     Active Substance: PREDNISOLONE
  2. IMMUNOGLOBULINS [Concomitant]
     Active Substance: HUMAN IMMUNOGLOBULIN G
     Route: 042
  3. THYMOGLOBULIN [Concomitant]
     Active Substance: LAPINE T-LYMPHOCYTE IMMUNE GLOBULIN
  4. TACROLIMUS. [Suspect]
     Active Substance: TACROLIMUS
  5. AZATHIOPRINE. [Concomitant]
     Active Substance: AZATHIOPRINE
  6. MYCOPHENOLIC ACID. [Concomitant]
     Active Substance: MYCOPHENOLIC ACID

REACTIONS (6)
  - Proteinuria [Recovered/Resolved]
  - Haemolytic uraemic syndrome [Unknown]
  - Disease recurrence [Unknown]
  - Complications of transplanted kidney [Unknown]
  - Thrombotic microangiopathy [Unknown]
  - Hypertension [Recovering/Resolving]
